FAERS Safety Report 10953235 (Version 2)
Quarter: 2015Q3

REPORT INFORMATION
  Report Type: Spontaneous
  Country: IT (occurrence: IT)
  Receive Date: 20150325
  Receipt Date: 20150804
  Transmission Date: 20151125
  Serious: Yes (Hospitalization, Other)
  Sender: FDA-Public Use
  Company Number: IT-PFIZER INC-2015104733

PATIENT
  Age: 68 Year
  Sex: Male

DRUGS (8)
  1. CORDARONE [Suspect]
     Active Substance: AMIODARONE HYDROCHLORIDE
     Dosage: 400 MG, DAILY (2 DF, STRENGTH: 200 MG)
     Route: 048
     Dates: start: 2011, end: 20120715
  2. CARDIRENE [Concomitant]
     Active Substance: ASPIRIN DL-LYSINE
     Dosage: UNK
  3. TRIATEC [Concomitant]
     Active Substance: RAMIPRIL
     Dosage: UNK
  4. CORDARONE [Suspect]
     Active Substance: AMIODARONE HYDROCHLORIDE
     Indication: ATRIAL FIBRILLATION
     Dosage: 400 MG, DAILY (2 DF, STRENGTH: 200 MG)
     Route: 048
     Dates: start: 20100417, end: 20100524
  5. CORDARONE [Suspect]
     Active Substance: AMIODARONE HYDROCHLORIDE
     Dosage: 200 MG, DAILY (1 DF, STRENGTH: 200 MG)
     Route: 048
     Dates: start: 20120805
  6. CORDARONE [Suspect]
     Active Substance: AMIODARONE HYDROCHLORIDE
     Dosage: 200 MG, DAILY (1 DF, STRENGTH: 200 MG)
     Route: 048
     Dates: start: 20120827, end: 20120827
  7. CORDARONE [Suspect]
     Active Substance: AMIODARONE HYDROCHLORIDE
     Dosage: 200 MG, DAILY (1 DF, STRENGTH: 200 MG)
     Route: 048
     Dates: end: 20130121
  8. BROMAZEPAM [Concomitant]
     Active Substance: BROMAZEPAM
     Dosage: UNK

REACTIONS (3)
  - Keratitis [Unknown]
  - Hyperthyroidism [Recovering/Resolving]
  - Ill-defined disorder [Unknown]

NARRATIVE: CASE EVENT DATE: 20120827
